FAERS Safety Report 6959589-0 (Version None)
Quarter: 2010Q3

REPORT INFORMATION
  Report Type: 
  Country: None (occurrence: None)
  Receive Date: 20100830
  Receipt Date: 20100817
  Transmission Date: 20110219
  Serious: Yes (Other)
  Sender: FDA-Public Use
  Company Number: CIP10001982

PATIENT
  Sex: Female

DRUGS (3)
  1. ACTONEL [Suspect]
     Indication: OSTEOPOROSIS
     Dosage: DOSAGE/REGIMEN, ORAL
     Route: 048
     Dates: start: 20030101, end: 20070101
  2. FOSAMAX [Suspect]
     Indication: OSTEOPOROSIS
     Dosage: DOSAGE/REGIMEN, ORAL
     Route: 048
     Dates: start: 20010101, end: 20030101
  3. BONIVA [Suspect]
     Indication: OSTEOPOROSIS
     Dates: start: 20070601, end: 20080801

REACTIONS (8)
  - ASTHENIA [None]
  - BONE DISORDER [None]
  - FEMUR FRACTURE [None]
  - LOW TURNOVER OSTEOPATHY [None]
  - MULTIPLE INJURIES [None]
  - OSTEONECROSIS OF JAW [None]
  - STRESS FRACTURE [None]
  - TOOTH DISORDER [None]
